FAERS Safety Report 8340271-2 (Version None)
Quarter: 2012Q2

REPORT INFORMATION
  Report Type: 
  Country: None (occurrence: None)
  Receive Date: 20120507
  Receipt Date: 20120501
  Transmission Date: 20120825
  Serious: Yes (Other)
  Sender: FDA-Public Use
  Company Number: US-JNJFOC-20120503756

PATIENT
  Sex: Female
  Weight: 101.61 kg

DRUGS (4)
  1. POTASSIUM CHLORIDE [Concomitant]
     Indication: BLOOD POTASSIUM
     Route: 048
     Dates: start: 20100101
  2. LASIX [Concomitant]
     Indication: ATRIAL FIBRILLATION
     Route: 048
     Dates: start: 20120101
  3. XARELTO [Suspect]
     Indication: ATRIAL FIBRILLATION
     Route: 048
     Dates: start: 20120405
  4. DILTIAZEM [Concomitant]
     Indication: HYPERTENSION
     Route: 048
     Dates: start: 20120405

REACTIONS (7)
  - ASTHENIA [None]
  - EPISTAXIS [None]
  - BLOOD CHOLESTEROL INCREASED [None]
  - NERVOUSNESS [None]
  - DIZZINESS [None]
  - FATIGUE [None]
  - ANXIETY [None]
